FAERS Safety Report 14257880 (Version 1)
Quarter: 2017Q4

REPORT INFORMATION
  Report Type: Spontaneous
  Country: JP (occurrence: JP)
  Receive Date: 20171207
  Receipt Date: 20171207
  Transmission Date: 20180321
  Serious: Yes (Other)
  Sender: FDA-Public Use
  Company Number: JP-AMGEN-JPNSP2017127947

PATIENT
  Age: 70 Year
  Sex: Female

DRUGS (17)
  1. CALONAL [Concomitant]
     Active Substance: ACETAMINOPHEN
     Dosage: UNK
  2. VITAMIN D [Concomitant]
     Active Substance: CHOLECALCIFEROL
  3. PARSABIV [Suspect]
     Active Substance: ETELCALCETIDE HYDROCHLORIDE
     Indication: HYPERPARATHYROIDISM SECONDARY
     Dosage: 5 MG, 3 TIMES/WK
     Route: 042
     Dates: start: 20170705, end: 20170723
  4. NESP [Concomitant]
     Active Substance: DARBEPOETIN ALFA
     Dosage: UNK
  5. ARTIST [Concomitant]
     Active Substance: CARVEDILOL
     Dosage: UNK
  6. COMPLAVIN [Concomitant]
     Active Substance: ASPIRIN\CLOPIDOGREL BISULFATE
     Dosage: UNK
  7. OLMETEC [Concomitant]
     Active Substance: OLMESARTAN MEDOXOMIL
     Dosage: UNK
  8. OXAROL [Concomitant]
     Active Substance: MAXACALCITOL
     Dosage: UNK UNK, 3 TIMES/WK 5MCG  TO 10 MCG
  9. PLETAAL [Concomitant]
     Active Substance: CILOSTAZOL
     Dosage: UNK
  10. CRESTOR [Concomitant]
     Active Substance: ROSUVASTATIN CALCIUM
     Dosage: UNK
  11. SENNOSIDE [Concomitant]
     Active Substance: SENNOSIDES
     Dosage: UNK
  12. ADALAT [Concomitant]
     Active Substance: NIFEDIPINE
     Dosage: UNK
  13. ANPLAG [Concomitant]
     Active Substance: SARPOGRELATE
     Dosage: UNK
  14. RIONA [Concomitant]
     Active Substance: FERRIC CITRATE ANHYDROUS
     Dosage: UNK, 750 MG TO 1500 MG FROM 6 TABLETS TO 3 TABLETS
  15. ALOSENN [Concomitant]
     Active Substance: SENNA LEAF
     Dosage: UNK
  16. PARSABIV [Suspect]
     Active Substance: ETELCALCETIDE HYDROCHLORIDE
     Dosage: 10 MG, 3 TIMES/WK
     Route: 042
     Dates: start: 20170724
  17. KALIMATE [Concomitant]
     Active Substance: CALCIUM POLYSTYRENE SULFONATE
     Dosage: UNK

REACTIONS (1)
  - Hypercalcaemia [Recovered/Resolved]

NARRATIVE: CASE EVENT DATE: 20170710
